FAERS Safety Report 7884997-3 (Version None)
Quarter: 2011Q4

REPORT INFORMATION
  Report Type: 
  Country: None (occurrence: None)
  Receive Date: 20111102
  Receipt Date: 20111031
  Transmission Date: 20120403
  Serious: Yes (Hospitalization, Other)
  Sender: FDA-Public Use
  Company Number: US-TEVA-304834USA

PATIENT

DRUGS (8)
  1. SINEMET [Concomitant]
  2. PRAMIPEXOLE DIHYDROCHLORIDE [Concomitant]
  3. FUROSEMIDE [Concomitant]
  4. METICRANE [Concomitant]
  5. LISINOPRIL [Concomitant]
  6. AZILECT [Suspect]
     Indication: PARKINSON'S DISEASE
     Route: 048
  7. METOPROLOL TARTRATE [Concomitant]
  8. ASPIRIN [Concomitant]

REACTIONS (1)
  - LOSS OF CONSCIOUSNESS [None]
